FAERS Safety Report 15243389 (Version 1)
Quarter: 2018Q3

REPORT INFORMATION
  Report Type: Spontaneous
  Country: US (occurrence: US)
  Receive Date: 20180712
  Receipt Date: 20180712
  Transmission Date: 20181010
  Serious: Yes (Other)
  Sender: FDA-Public Use
  Company Number: None

PATIENT
  Sex: Female

DRUGS (1)
  1. REPATHA [Suspect]
     Active Substance: EVOLOCUMAB
     Indication: TYPE V HYPERLIPIDAEMIA
     Route: 058
     Dates: start: 20180622, end: 20180622

REACTIONS (7)
  - Cough [None]
  - Gait disturbance [None]
  - Lacrimation increased [None]
  - Eye pruritus [None]
  - Oropharyngeal pain [None]
  - Asthenia [None]
  - Sunburn [None]
